FAERS Safety Report 22188990 (Version 1)
Quarter: 2023Q2

REPORT INFORMATION
  Report Type: Spontaneous
  Country: TW (occurrence: TW)
  Receive Date: 20230409
  Receipt Date: 20230409
  Transmission Date: 20230721
  Serious: Yes (Death, Other)
  Sender: FDA-Public Use
  Company Number: TW-AMGEN-TWNSP2023060185

PATIENT

DRUGS (3)
  1. BEVACIZUMAB [Suspect]
     Active Substance: BEVACIZUMAB
     Indication: HER2 mutant non-small cell lung cancer
     Dosage: UNK
     Route: 065
  2. PEMETREXED [Concomitant]
     Active Substance: PEMETREXED
     Indication: HER2 mutant non-small cell lung cancer
     Dosage: UNK
  3. PLATINUM [Concomitant]
     Active Substance: PLATINUM
     Indication: HER2 mutant non-small cell lung cancer
     Dosage: UNK

REACTIONS (2)
  - Death [Fatal]
  - Non-small cell lung cancer [Unknown]
